FAERS Safety Report 26091251 (Version 1)
Quarter: 2025Q4

REPORT INFORMATION
  Report Type: Spontaneous
  Country: US (occurrence: US)
  Receive Date: 20251126
  Receipt Date: 20251126
  Transmission Date: 20260117
  Serious: No
  Sender: PADAGIS
  Company Number: US-PADAGIS-2025PAD01456

PATIENT

DRUGS (2)
  1. EVAMIST [Suspect]
     Active Substance: ESTRADIOL
     Indication: Menopausal symptoms
     Dosage: 1-3 SPRAYS PER DAY BASED ON MY CYCLE (USED 9+ MONTHS)
     Route: 065
  2. EVAMIST [Suspect]
     Active Substance: ESTRADIOL
     Dosage: 1-3 SPRAYS PER DAY BASED ON MY CYCLE
     Route: 065
     Dates: start: 20251107, end: 20251113

REACTIONS (1)
  - Drug ineffective [Unknown]

NARRATIVE: CASE EVENT DATE: 20251107
